FAERS Safety Report 8349404-5 (Version None)
Quarter: 2012Q2

REPORT INFORMATION
  Report Type: 
  Country: None (occurrence: None)
  Receive Date: 20120508
  Receipt Date: 20120508
  Transmission Date: 20120825
  Serious: Yes (Hospitalization)
  Sender: FDA-Public Use
  Company Number: None

PATIENT
  Age: 63 Year
  Sex: Male
  Weight: 52.5 kg

DRUGS (1)
  1. GLYBURIDE [Suspect]
     Indication: TYPE 2 DIABETES MELLITUS
     Dosage: 5 MG BID PO
     Route: 048
     Dates: start: 20110910, end: 20120502

REACTIONS (1)
  - HYPOGLYCAEMIA [None]
